FAERS Safety Report 7621705-5 (Version None)
Quarter: 2011Q3

REPORT INFORMATION
  Report Type: 
  Country: None (occurrence: None)
  Receive Date: 20110719
  Receipt Date: 20110712
  Transmission Date: 20111222
  Serious: Yes (Life-Threatening, Hospitalization, Other)
  Sender: FDA-Public Use
  Company Number: JP-MERCK-1107USA00316

PATIENT
  Age: 67 Year
  Sex: Male
  Weight: 72 kg

DRUGS (5)
  1. ZETIA [Suspect]
     Indication: HYPERLIPIDAEMIA
     Route: 048
     Dates: start: 20110501
  2. METHYCOBAL [Concomitant]
     Route: 048
     Dates: start: 20060101
  3. BARACLUDE [Concomitant]
     Indication: CHRONIC HEPATITIS
     Route: 048
     Dates: end: 20110601
  4. METHYCOBAL [Concomitant]
     Indication: HYPOAESTHESIA
     Route: 048
     Dates: start: 20060101
  5. DIOVAN [Concomitant]
     Indication: HYPERTENSION
     Route: 048
     Dates: start: 20080101

REACTIONS (2)
  - RENAL FAILURE ACUTE [None]
  - RHABDOMYOLYSIS [None]
